FAERS Safety Report 9187658 (Version 1)
Quarter: 2013Q1

REPORT INFORMATION
  Report Type: Spontaneous
  Country: US (occurrence: US)
  Receive Date: 20130325
  Receipt Date: 20130325
  Transmission Date: 20140127
  Serious: Yes (Hospitalization)
  Sender: FDA-Public Use
  Company Number: US-BAYER-2013-036066

PATIENT
  Age: 36 Year
  Sex: Female

DRUGS (3)
  1. OCELLA [Suspect]
  2. LORAZEPAM [Concomitant]
  3. METFORMIN [Concomitant]

REACTIONS (1)
  - Pulmonary embolism [None]
